FAERS Safety Report 9528645 (Version 1)
Quarter: 2013Q3

REPORT INFORMATION
  Report Type: Spontaneous
  Country: US (occurrence: US)
  Receive Date: 20130917
  Receipt Date: 20130917
  Transmission Date: 20140515
  Serious: No
  Sender: FDA-Public Use
  Company Number: US-BANPHARM-20120353

PATIENT
  Age: 64 Year
  Sex: Female
  Weight: 103 kg

DRUGS (2)
  1. ZYRTEC LIQUID GELS 10 MG [Suspect]
     Indication: MULTIPLE ALLERGIES
     Dosage: 1 DF, QD,
     Route: 048
     Dates: start: 20121019, end: 20121108
  2. DILANTIN [Concomitant]
     Indication: ACCIDENT
     Dosage: 400,MG, QD,
     Dates: start: 19990101

REACTIONS (2)
  - Blood pressure increased [Unknown]
  - Headache [Not Recovered/Not Resolved]
